FAERS Safety Report 23772642 (Version 1)
Quarter: 2024Q2

REPORT INFORMATION
  Report Type: Spontaneous
  Country: US (occurrence: US)
  Receive Date: 20240423
  Receipt Date: 20240423
  Transmission Date: 20240716
  Serious: Yes (Hospitalization, Other)
  Sender: FDA-Public Use
  Company Number: US-CIPLA LTD.-2024US03920

PATIENT

DRUGS (3)
  1. LENALIDOMIDE [Suspect]
     Active Substance: LENALIDOMIDE
     Indication: Plasma cell myeloma
     Dosage: UNK, CYCLE 2 WITH PLANS FOR 21  DAYS OF TREATMENT, FOLLOWED BY 7 DAYS OFF
     Route: 065
  2. BORTEZOMIB [Suspect]
     Active Substance: BORTEZOMIB
     Indication: Plasma cell myeloma
     Dosage: UNK
     Route: 042
  3. DEXAMETHASONE [Suspect]
     Active Substance: DEXAMETHASONE
     Indication: Plasma cell myeloma
     Dosage: UNK
     Route: 042

REACTIONS (5)
  - Respiratory failure [Recovered/Resolved]
  - Pulmonary toxicity [Recovered/Resolved]
  - Pleural effusion [Recovered/Resolved]
  - Interstitial lung disease [Recovered/Resolved]
  - Product distribution issue [Unknown]
